FAERS Safety Report 25832076 (Version 1)
Quarter: 2025Q3

REPORT INFORMATION
  Report Type: Report from Study
  Country: US (occurrence: US)
  Receive Date: 20250922
  Receipt Date: 20250922
  Transmission Date: 20251021
  Serious: Yes (Other)
  Sender: ABBVIE
  Company Number: US-ABBVIE-6338844

PATIENT
  Age: 80 Year
  Sex: Female

DRUGS (4)
  1. RINVOQ [Suspect]
     Active Substance: UPADACITINIB
     Indication: Colitis ulcerative
     Route: 048
     Dates: start: 20250202
  2. RINVOQ [Suspect]
     Active Substance: UPADACITINIB
     Indication: Colitis ulcerative
     Route: 048
     Dates: start: 20250227
  3. RINVOQ [Suspect]
     Active Substance: UPADACITINIB
     Indication: Colitis ulcerative
     Route: 048
     Dates: start: 2025, end: 2025
  4. RINVOQ [Suspect]
     Active Substance: UPADACITINIB
     Indication: Colitis ulcerative
     Route: 048
     Dates: start: 2025

REACTIONS (7)
  - Ulcer haemorrhage [Recovering/Resolving]
  - Asthenia [Unknown]
  - Haemoglobin abnormal [Not Recovered/Not Resolved]
  - Haemoglobin decreased [Recovering/Resolving]
  - Cystitis [Unknown]
  - Decreased appetite [Unknown]
  - Gastritis [Unknown]

NARRATIVE: CASE EVENT DATE: 20250101
